APPROVED DRUG PRODUCT: CERETEC
Active Ingredient: TECHNETIUM TC-99M EXAMETAZIME KIT
Strength: N/A
Dosage Form/Route: INJECTABLE;INJECTION
Application: N019829 | Product #001
Applicant: GE HEALTHCARE
Approved: Dec 30, 1988 | RLD: Yes | RS: Yes | Type: RX